FAERS Safety Report 7715964-8 (Version None)
Quarter: 2011Q3

REPORT INFORMATION
  Report Type: 
  Country: None (occurrence: None)
  Receive Date: 20110829
  Receipt Date: 20110822
  Transmission Date: 20111222
  Serious: Yes (Other)
  Sender: FDA-Public Use
  Company Number: US-AMGEN-USASP2011042764

PATIENT
  Age: 50 Year
  Sex: Female

DRUGS (5)
  1. PROLIA [Suspect]
     Indication: OSTEOPOROSIS POSTMENOPAUSAL
     Dosage: 60 MG, Q6MO
     Dates: start: 20110812
  2. CYCLOBENZAPRINE [Concomitant]
  3. DICLOFENAC SODIUM [Concomitant]
  4. VITAMIN D [Concomitant]
  5. HYDROCODONE BITARTRATE [Concomitant]

REACTIONS (5)
  - ASTHENIA [None]
  - PAIN [None]
  - FEELING ABNORMAL [None]
  - PYREXIA [None]
  - DYSPNOEA [None]
